FAERS Safety Report 14687627 (Version 1)
Quarter: 2018Q1

REPORT INFORMATION
  Report Type: Spontaneous
  Country: PL (occurrence: PL)
  Receive Date: 20180328
  Receipt Date: 20180328
  Transmission Date: 20180509
  Serious: Yes (Hospitalization)
  Sender: FDA-Public Use
  Company Number: PL-ASTRAZENECA-2018SE37245

PATIENT
  Age: 53 Year
  Sex: Male

DRUGS (7)
  1. RAMIPRIL. [Concomitant]
     Active Substance: RAMIPRIL
  2. BRILIQUE [Suspect]
     Active Substance: TICAGRELOR
     Route: 048
  3. ROSUVASTATIN. [Concomitant]
     Active Substance: ROSUVASTATIN
  4. ASA [Concomitant]
     Active Substance: ASPIRIN
  5. BISOPROLOL [Concomitant]
     Active Substance: BISOPROLOL
     Dosage: 5.0MG UNKNOWN
  6. TORASEMIDE [Concomitant]
     Active Substance: TORSEMIDE
     Dosage: 5.0MG UNKNOWN
  7. EPLERENONE. [Concomitant]
     Active Substance: EPLERENONE
     Dosage: 50.0MG UNKNOWN

REACTIONS (1)
  - Stent malfunction [Unknown]
